FAERS Safety Report 8518867-4 (Version None)
Quarter: 2012Q3

REPORT INFORMATION
  Report Type: 
  Country: None (occurrence: None)
  Receive Date: 20120718
  Receipt Date: 20120716
  Transmission Date: 20120928
  Serious: Yes (Death, Hospitalization, Other)
  Sender: FDA-Public Use
  Company Number: PHHY2012CA040125

PATIENT
  Sex: Male

DRUGS (1)
  1. ZOMETA [Suspect]
     Indication: LUNG CANCER METASTATIC
     Dosage: 3.3 MG, EVERY 4 WEEKS
     Route: 042
     Dates: start: 20120418, end: 20120516

REACTIONS (5)
  - OPEN WOUND [None]
  - MEMORY IMPAIRMENT [None]
  - BLOOD BLISTER [None]
  - DEATH [None]
  - PYREXIA [None]
